FAERS Safety Report 7849354-4 (Version None)
Quarter: 2011Q4

REPORT INFORMATION
  Report Type: 
  Country: None (occurrence: None)
  Receive Date: 20111021
  Receipt Date: 20111011
  Transmission Date: 20120403
  Serious: Yes (Hospitalization)
  Sender: FDA-Public Use
  Company Number: 2011-01175

PATIENT
  Age: 56 Year
  Sex: Female
  Weight: 81.6475 kg

DRUGS (6)
  1. LISINOPRIL [Suspect]
     Indication: HYPERTENSION
     Dosage: 10 MG (10 MG, 1 IN 1 D), PER ORAL
     Route: 048
     Dates: start: 20110301, end: 20110501
  2. DICVCLOMINE (CAPSULES) [Concomitant]
  3. MEDROXYPROGESTERONE (TABLETS) [Concomitant]
  4. ESTRADIOL PATCH [Concomitant]
  5. LITHIUM (CAPSULES) [Concomitant]
  6. PAROXETINE (PAXIL)(TABLETS) [Concomitant]

REACTIONS (3)
  - RASH [None]
  - SWELLING [None]
  - BLISTER [None]
